FAERS Safety Report 19875062 (Version 1)
Quarter: 2021Q3

REPORT INFORMATION
  Report Type: Spontaneous
  Country: CN (occurrence: CN)
  Receive Date: 20210923
  Receipt Date: 20210923
  Transmission Date: 20211014
  Serious: Yes (Other)
  Sender: FDA-Public Use
  Company Number: CN-ROCHE-2913964

PATIENT
  Age: 56 Year
  Sex: Female

DRUGS (2)
  1. SODIUM CHLORIDE IV [Concomitant]
     Active Substance: SODIUM CHLORIDE
     Route: 041
     Dates: start: 20210908, end: 20210908
  2. HERCEPTIN [Suspect]
     Active Substance: TRASTUZUMAB
     Indication: NEOPLASM
     Route: 041
     Dates: start: 20210908, end: 20210908

REACTIONS (4)
  - Chills [Recovering/Resolving]
  - Myelosuppression [Unknown]
  - Hyperpyrexia [Recovering/Resolving]
  - Nausea [Recovering/Resolving]

NARRATIVE: CASE EVENT DATE: 20210908
